FAERS Safety Report 4293341-2 (Version None)
Quarter: 2004Q1

REPORT INFORMATION
  Report Type: 
  Country: None (occurrence: None)
  Receive Date: 20040209
  Receipt Date: 20030414
  Transmission Date: 20041129
  Serious: Yes (Hospitalization)
  Sender: FDA-Public Use
  Company Number: RPH 25/03

PATIENT
  Age: 15 Year
  Sex: Female

DRUGS (1)
  1. DRAXIMAGE MDP [Suspect]
     Indication: BONE SCAN
     Dosage: 25 MCI
     Dates: start: 20030411

REACTIONS (2)
  - CONVULSION [None]
  - HEADACHE [None]
